FAERS Safety Report 18384978 (Version 1)
Quarter: 2020Q4

REPORT INFORMATION
  Report Type: Spontaneous
  Country: US (occurrence: US)
  Receive Date: 20201015
  Receipt Date: 20201015
  Transmission Date: 20210114
  Serious: No
  Sender: FDA-Public Use
  Company Number: US-SA-2020SA279290

PATIENT

DRUGS (8)
  1. DUPIXENT [Suspect]
     Active Substance: DUPILUMAB
     Indication: DERMATITIS ATOPIC
     Dosage: 300 MG, QOW
     Route: 058
     Dates: start: 20200911
  2. ALPRAZOLAM. [Concomitant]
     Active Substance: ALPRAZOLAM
  3. OXYCODON [Concomitant]
     Active Substance: OXYCODONE
  4. CETIRIZINE [Concomitant]
     Active Substance: CETIRIZINE HYDROCHLORIDE
  5. FLUCONAZOLE. [Concomitant]
     Active Substance: FLUCONAZOLE
  6. GABAPENTIN. [Concomitant]
     Active Substance: GABAPENTIN
  7. PROPYLTHIOURACIL. [Concomitant]
     Active Substance: PROPYLTHIOURACIL
  8. AZITHROMYCIN ANHYDROUS. [Concomitant]
     Active Substance: AZITHROMYCIN ANHYDROUS

REACTIONS (1)
  - Dermatitis atopic [Not Recovered/Not Resolved]

NARRATIVE: CASE EVENT DATE: 20200928
